FAERS Safety Report 22055997 (Version 1)
Quarter: 2023Q1

REPORT INFORMATION
  Report Type: Spontaneous
  Country: IT (occurrence: IT)
  Receive Date: 20230302
  Receipt Date: 20230302
  Transmission Date: 20230417
  Serious: Yes (Hospitalization, Other)
  Sender: FDA-Public Use
  Company Number: IT-BAUSCH-BL-2023-003178

PATIENT
  Age: 76 Year
  Sex: Male

DRUGS (3)
  1. LORAZEPAM [Interacting]
     Active Substance: LORAZEPAM
     Indication: Anxiety
     Route: 065
  2. RAMIPRIL [Interacting]
     Active Substance: RAMIPRIL
     Indication: Hypertension
     Route: 048
  3. LERCANIDIPINE HYDROCHLORIDE [Interacting]
     Active Substance: LERCANIDIPINE HYDROCHLORIDE
     Indication: Hypertension
     Route: 048

REACTIONS (4)
  - Drug interaction [Recovering/Resolving]
  - Depressed mood [Recovering/Resolving]
  - Drug abuse [Recovering/Resolving]
  - Somnolence [Recovering/Resolving]
